FAERS Safety Report 12037086 (Version 2)
Quarter: 2016Q1

REPORT INFORMATION
  Report Type: Spontaneous
  Country: US (occurrence: US)
  Receive Date: 20160208
  Receipt Date: 20160212
  Transmission Date: 20160526
  Serious: Yes (Other)
  Sender: FDA-Public Use
  Company Number: US-ALEMBIC PHARMACUETICALS LIMITED-2016SCAL000093

PATIENT
  Age: 7 Year
  Sex: Male

DRUGS (1)
  1. ARIPIPRAZOLE. [Suspect]
     Active Substance: ARIPIPRAZOLE
     Indication: PRODUCT USED FOR UNKNOWN INDICATION
     Dosage: UNK

REACTIONS (4)
  - Product substitution issue [Unknown]
  - Abnormal behaviour [Recovered/Resolved]
  - Intentional self-injury [Recovered/Resolved]
  - Aggression [Recovered/Resolved]
